FAERS Safety Report 16593055 (Version 1)
Quarter: 2019Q3

REPORT INFORMATION
  Report Type: Spontaneous
  Country: FR (occurrence: FR)
  Receive Date: 20190718
  Receipt Date: 20190718
  Transmission Date: 20191004
  Serious: Yes (Life-Threatening)
  Sender: FDA-Public Use
  Company Number: FR-BAUSCH-BL-2019-020217

PATIENT
  Age: 85 Year
  Sex: Female
  Weight: 72.5 kg

DRUGS (2)
  1. DICLOFENAC [Suspect]
     Active Substance: DICLOFENAC
     Indication: PAIN
     Route: 061
     Dates: start: 20190615
  2. FELDENE [Suspect]
     Active Substance: PIROXICAM
     Indication: OSTEOARTHRITIS
     Route: 048
     Dates: start: 201906

REACTIONS (1)
  - Toxic epidermal necrolysis [Not Recovered/Not Resolved]

NARRATIVE: CASE EVENT DATE: 20190616
